FAERS Safety Report 6975255-X (Version None)
Quarter: 2010Q3

REPORT INFORMATION
  Report Type: 
  Country: None (occurrence: None)
  Receive Date: 20100910
  Receipt Date: 20090219
  Transmission Date: 20110219
  Serious: No
  Sender: FDA-Public Use
  Company Number: US-WYE-H08295209

PATIENT
  Sex: Female
  Weight: 86.26 kg

DRUGS (6)
  1. PRISTIQ [Suspect]
     Indication: DEPRESSION
  2. MELOXICAM [Concomitant]
  3. AMLODIPINE [Concomitant]
     Indication: HYPERTENSION
     Dosage: UNKNOWN
     Dates: start: 20090216
  4. GABAPENTIN [Concomitant]
  5. CLONIDINE [Suspect]
     Indication: HYPERTENSION
     Dosage: UNKNOWN
     Dates: start: 20090216
  6. ATENOLOL [Concomitant]

REACTIONS (2)
  - DIARRHOEA [None]
  - VOMITING [None]
